FAERS Safety Report 9729910 (Version 1)
Quarter: 2013Q4

REPORT INFORMATION
  Report Type: Spontaneous
  Country: US (occurrence: US)
  Receive Date: 20131204
  Receipt Date: 20131204
  Transmission Date: 20140711
  Serious: Yes (Other)
  Sender: FDA-Public Use
  Company Number: US-ELI_LILLY_AND_COMPANY-US201311009061

PATIENT
  Sex: Female

DRUGS (2)
  1. CYMBALTA [Suspect]
     Indication: ANXIETY
     Dosage: 20 MG, QD
     Route: 065
     Dates: start: 2012
  2. CYMBALTA [Suspect]
     Indication: PAIN

REACTIONS (3)
  - Suicidal ideation [Unknown]
  - Nausea [Unknown]
  - Drug withdrawal syndrome [Unknown]
